FAERS Safety Report 15076574 (Version 1)
Quarter: 2018Q2

REPORT INFORMATION
  Report Type: Spontaneous
  Country: SE (occurrence: SE)
  Receive Date: 20180627
  Receipt Date: 20180627
  Transmission Date: 20180711
  Serious: Yes (Hospitalization, Other)
  Sender: FDA-Public Use
  Company Number: SE-TEVA-2018-SE-912406

PATIENT
  Age: 70 Year
  Sex: Female

DRUGS (2)
  1. CELECOXIB. [Interacting]
     Active Substance: CELECOXIB
     Indication: ARTHRALGIA
     Dosage: 400 MILLIGRAM DAILY;
     Route: 065
     Dates: start: 20180423, end: 20180428
  2. ENALAPRIL MALEATE. [Suspect]
     Active Substance: ENALAPRIL MALEATE
     Indication: HYPERTENSION
     Route: 065
     Dates: end: 201805

REACTIONS (2)
  - Acute kidney injury [Unknown]
  - Drug interaction [Unknown]

NARRATIVE: CASE EVENT DATE: 20180514
